FAERS Safety Report 5093571-6 (Version None)
Quarter: 2006Q3

REPORT INFORMATION
  Report Type: 
  Country: None (occurrence: None)
  Receive Date: 20060829
  Receipt Date: 20060814
  Transmission Date: 20061208
  Serious: Yes (Hospitalization, Other)
  Sender: FDA-Public Use
  Company Number: US200605006837

PATIENT
  Sex: Male
  Weight: 106.6 kg

DRUGS (1)
  1. ZYPREXA [Suspect]

REACTIONS (16)
  - BLOOD CHOLESTEROL ABNORMAL [None]
  - CONDITION AGGRAVATED [None]
  - DIABETES MELLITUS [None]
  - DIABETIC COMA [None]
  - HYPERGLYCAEMIA [None]
  - HYPERTENSION [None]
  - HYPOGLYCAEMIA [None]
  - INSULIN RESISTANCE [None]
  - KETOACIDOSIS [None]
  - KETONURIA [None]
  - KETOSIS [None]
  - METABOLIC DISORDER [None]
  - MUMPS [None]
  - PENILE PROSTHESIS INSERTION [None]
  - VISION BLURRED [None]
  - WEIGHT DECREASED [None]
